FAERS Safety Report 14592548 (Version 3)
Quarter: 2018Q2

REPORT INFORMATION
  Report Type: Spontaneous
  Country: US (occurrence: US)
  Receive Date: 20180302
  Receipt Date: 20180409
  Transmission Date: 20180711
  Serious: No
  Sender: FDA-Public Use
  Company Number: US-009507513-1802USA008402

PATIENT
  Sex: Female

DRUGS (4)
  1. ONDANSETRON [Concomitant]
     Active Substance: ONDANSETRON
  2. ENOXAPARIN SODIUM. [Concomitant]
     Active Substance: ENOXAPARIN SODIUM
  3. INTRON A [Suspect]
     Active Substance: INTERFERON ALFA-2B
     Indication: CHRONIC MYELOID LEUKAEMIA
     Dosage: 0.28 ML, 3 TIMES WEEKLY
     Route: 030
     Dates: start: 20171230
  4. POTASSIUM (UNSPECIFIED) [Concomitant]
     Active Substance: POTASSIUM

REACTIONS (2)
  - Nausea [Unknown]
  - Fatigue [Unknown]
